FAERS Safety Report 15165679 (Version 2)
Quarter: 2018Q3

REPORT INFORMATION
  Report Type: Spontaneous
  Country: US (occurrence: US)
  Receive Date: 20180719
  Receipt Date: 20180725
  Transmission Date: 20181010
  Serious: Yes (Other)
  Sender: FDA-Public Use
  Company Number: US-009507513-1807USA005003

PATIENT

DRUGS (1)
  1. INTEGRILIN [Suspect]
     Active Substance: EPTIFIBATIDE
     Indication: ANTIPLATELET THERAPY
     Dosage: 2 MICROGRAM PER KILOGRAM/MIN

REACTIONS (2)
  - Haemorrhage [Unknown]
  - Off label use [Unknown]
